FAERS Safety Report 25193937 (Version 2)
Quarter: 2025Q3

REPORT INFORMATION
  Report Type: Report from Study
  Country: EU (occurrence: EU)
  Receive Date: 20250414
  Receipt Date: 20250703
  Transmission Date: 20251020
  Serious: Yes (Other)
  Sender: ABBVIE
  Company Number: EU-ABBVIE-6066516

PATIENT
  Age: 72 Year
  Sex: Male

DRUGS (15)
  1. FOSCARBIDOPA\FOSLEVODOPA [Suspect]
     Active Substance: FOSCARBIDOPA\FOSLEVODOPA
     Indication: Parkinson^s disease
     Route: 058
     Dates: start: 20241120
  2. FOSCARBIDOPA\FOSLEVODOPA [Suspect]
     Active Substance: FOSCARBIDOPA\FOSLEVODOPA
     Route: 058
     Dates: start: 20241124, end: 2025
  3. FOSCARBIDOPA\FOSLEVODOPA [Suspect]
     Active Substance: FOSCARBIDOPA\FOSLEVODOPA
     Route: 058
     Dates: start: 2025
  4. FOSCARBIDOPA\FOSLEVODOPA [Suspect]
     Active Substance: FOSCARBIDOPA\FOSLEVODOPA
     Route: 058
     Dates: start: 2025, end: 2025
  5. REQUIP [Concomitant]
     Active Substance: ROPINIROLE HYDROCHLORIDE
     Indication: Parkinson^s disease
     Route: 048
  6. REQUIP [Concomitant]
     Active Substance: ROPINIROLE HYDROCHLORIDE
     Indication: Parkinson^s disease
     Route: 048
  7. PANTOPRAZOLE [Concomitant]
     Active Substance: PANTOPRAZOLE
     Indication: Product used for unknown indication
     Route: 048
  8. STALEVO [Concomitant]
     Active Substance: CARBIDOPA\ENTACAPONE\LEVODOPA
     Indication: Product used for unknown indication
     Route: 048
  9. STALEVO [Concomitant]
     Active Substance: CARBIDOPA\ENTACAPONE\LEVODOPA
     Indication: Product used for unknown indication
     Route: 048
  10. RIVOTRIL [Concomitant]
     Active Substance: CLONAZEPAM
     Indication: Product used for unknown indication
     Route: 048
  11. Paradine [Concomitant]
     Indication: Parkinson^s disease
  12. ETHYL LOFLAZEPATE [Concomitant]
     Active Substance: ETHYL LOFLAZEPATE
     Indication: Product used for unknown indication
  13. XADAGO [Concomitant]
     Active Substance: SAFINAMIDE MESYLATE
     Indication: Parkinson^s disease
     Route: 048
  14. RIVASTIGMINE [Concomitant]
     Active Substance: RIVASTIGMINE
     Indication: Dementia
  15. APOMORPHINE HYDROCHLORIDE [Concomitant]
     Active Substance: APOMORPHINE HYDROCHLORIDE
     Indication: Product used for unknown indication

REACTIONS (14)
  - Infusion site discharge [Recovered/Resolved]
  - Infusion site swelling [Recovered/Resolved]
  - Infusion site pain [Recovered/Resolved]
  - Infusion site warmth [Recovered/Resolved]
  - Infusion site erythema [Recovered/Resolved]
  - Infusion site abscess [Recovered/Resolved]
  - Infusion site swelling [Not Recovered/Not Resolved]
  - Infusion site swelling [Recovered/Resolved]
  - Infusion site erythema [Not Recovered/Not Resolved]
  - Infusion site erythema [Recovered/Resolved]
  - Infusion site warmth [Recovered/Resolved]
  - Infusion site swelling [Recovered/Resolved]
  - Infusion site erythema [Recovered/Resolved]
  - Unevaluable event [Unknown]

NARRATIVE: CASE EVENT DATE: 20241224
